FAERS Safety Report 16943907 (Version 1)
Quarter: 2019Q4

REPORT INFORMATION
  Report Type: Spontaneous
  Country: GB (occurrence: GB)
  Receive Date: 20191022
  Receipt Date: 20191022
  Transmission Date: 20200122
  Serious: Yes (Life-Threatening)
  Sender: FDA-Public Use
  Company Number: GB-TEVA-2019-GB-1124447

PATIENT
  Age: 57 Year
  Sex: Female
  Weight: 75.29 kg

DRUGS (2)
  1. RAMIPRIL. [Suspect]
     Active Substance: RAMIPRIL
     Dates: start: 20190624
  2. EPIPEN [Concomitant]
     Active Substance: EPINEPHRINE
     Dosage: 300 MICROGRAMS/0.3ML SOLUTION FOR INJECTION

REACTIONS (1)
  - Swelling face [Recovering/Resolving]

NARRATIVE: CASE EVENT DATE: 20190624
